FAERS Safety Report 8432455-X (Version None)
Quarter: 2012Q2

REPORT INFORMATION
  Report Type: 
  Country: None (occurrence: None)
  Receive Date: 20120613
  Receipt Date: 20120608
  Transmission Date: 20120825
  Serious: Yes (Other)
  Sender: FDA-Public Use
  Company Number: US-PFIZER INC-2012138654

PATIENT
  Sex: Female
  Weight: 83.447 kg

DRUGS (3)
  1. ZOLOFT [Suspect]
     Indication: DEPRESSION
     Dosage: UNK
  2. LYRICA [Suspect]
     Indication: PAIN
     Dosage: 50 MG, 2X/DAY
     Route: 048
     Dates: start: 20120529
  3. CLONAZEPAM [Concomitant]
     Indication: ANXIETY
     Dosage: UNK

REACTIONS (10)
  - OEDEMA PERIPHERAL [None]
  - LIP OEDEMA [None]
  - DRUG INEFFECTIVE [None]
  - FACE OEDEMA [None]
  - DEPRESSION [None]
  - WEIGHT INCREASED [None]
  - DYSPHAGIA [None]
  - DIZZINESS [None]
  - NAUSEA [None]
  - MALAISE [None]
